FAERS Safety Report 10846257 (Version 1)
Quarter: 2015Q1

REPORT INFORMATION
  Report Type: Spontaneous
  Country: US (occurrence: US)
  Receive Date: 20150220
  Receipt Date: 20150220
  Transmission Date: 20150721
  Serious: No
  Sender: FDA-Public Use
  Company Number: US-MYLANLABS-2014M1016127

PATIENT
  Age: 57 Year
  Sex: Female
  Weight: 58.96 kg

DRUGS (2)
  1. TOLTERODINE TARTRATE EXTENDED-RELEASE CAPSULES [Suspect]
     Active Substance: TOLTERODINE TARTRATE
     Indication: MULTIPLE SCLEROSIS
  2. TOLTERODINE TARTRATE EXTENDED-RELEASE CAPSULES [Suspect]
     Active Substance: TOLTERODINE TARTRATE
     Indication: INCONTINENCE
     Dosage: 4 MG, QD
     Route: 048
     Dates: start: 20141218, end: 20141226

REACTIONS (3)
  - Swelling [Recovered/Resolved]
  - Drug ineffective [Recovered/Resolved]
  - Abdominal distension [Recovered/Resolved]

NARRATIVE: CASE EVENT DATE: 20141215
